FAERS Safety Report 7340622-1 (Version None)
Quarter: 2011Q1

REPORT INFORMATION
  Report Type: 
  Country: None (occurrence: None)
  Receive Date: 20110309
  Receipt Date: 20110307
  Transmission Date: 20110831
  Serious: Yes (Disabling)
  Sender: FDA-Public Use
  Company Number: GB-ROCHE-626085

PATIENT
  Sex: Female
  Weight: 68 kg

DRUGS (9)
  1. OMEPRAZOLE [Concomitant]
     Dates: start: 20090312
  2. IBUPROFEN [Concomitant]
     Route: 048
     Dates: start: 20090214
  3. BEVACIZUMAB [Suspect]
     Dosage: LAST DOSE PRIOR TO SAE WAS ON 20/02/09.
     Route: 042
     Dates: start: 20080708
  4. PARACETAMOL [Concomitant]
     Route: 048
     Dates: start: 20080711
  5. IBRUFEN [Concomitant]
     Dates: start: 20090312
  6. CARBOPLATIN [Suspect]
     Dosage: DATE OF MOST RECENT ADMINISTRATION: 28 OCTOBER 2008.
     Route: 042
     Dates: start: 20080708
  7. PACLITAXEL [Suspect]
     Dosage: FORM: INFUSION (AS PER PROTOCOL), DATE OF MOST RECENT ADMINISTRATION: 28 OCTOBER 2008.
     Route: 042
     Dates: start: 20080708
  8. SERTRALINE [Concomitant]
  9. CO-DYDRAMOL [Concomitant]
     Dosage: TDD: 10/500 MG.
     Dates: start: 20090312

REACTIONS (1)
  - ARTHRALGIA [None]
